FAERS Safety Report 6429542-4 (Version None)
Quarter: 2009Q4

REPORT INFORMATION
  Report Type: 
  Country: None (occurrence: None)
  Receive Date: 20091102
  Receipt Date: 20091022
  Transmission Date: 20100525
  Serious: Yes (Death, Hospitalization)
  Sender: FDA-Public Use
  Company Number: 2009AL006766

PATIENT
  Age: 40 Year
  Sex: Female
  Weight: 48.9885 kg

DRUGS (9)
  1. OXYCODONE HCL [Suspect]
     Dosage: 30 MG; PRN; PO
     Route: 048
     Dates: start: 20071024
  2. AXITINIB [Concomitant]
  3. CISPLATIN [Concomitant]
  4. SENNA [Concomitant]
  5. CITRACAL [Concomitant]
  6. CEMCITABINE [Concomitant]
  7. FENTANYL CITRATE [Concomitant]
  8. DULCOLAX [Concomitant]
  9. LACTULOSE [Concomitant]

REACTIONS (2)
  - CONSTIPATION [None]
  - MALIGNANT NEOPLASM PROGRESSION [None]
